APPROVED DRUG PRODUCT: DOXEPIN HYDROCHLORIDE
Active Ingredient: DOXEPIN HYDROCHLORIDE
Strength: EQ 50MG BASE
Dosage Form/Route: CAPSULE;ORAL
Application: A071422 | Product #004
Applicant: PH HEALTH LTD
Approved: Nov 9, 1987 | RLD: No | RS: No | Type: DISCN